FAERS Safety Report 11462112 (Version 1)
Quarter: 2015Q3

REPORT INFORMATION
  Report Type: Spontaneous
  Country: US (occurrence: US)
  Receive Date: 20150831
  Receipt Date: 20150831
  Transmission Date: 20151125
  Serious: Yes (Hospitalization)
  Sender: FDA-Public Use
  Company Number: US-ELI_LILLY_AND_COMPANY-US201008002329

PATIENT
  Age: 47 Year
  Sex: Female

DRUGS (3)
  1. FAMOTIDINE. [Concomitant]
     Active Substance: FAMOTIDINE
  2. CYMBALTA [Suspect]
     Active Substance: DULOXETINE HYDROCHLORIDE
     Dosage: 60 MG, DAILY (1/D)
     Route: 048
     Dates: start: 20100414, end: 20100729
  3. CYMBALTA [Suspect]
     Active Substance: DULOXETINE HYDROCHLORIDE
     Indication: DEPRESSION
     Dosage: 30 MG, UNK
     Route: 048
     Dates: start: 20100204

REACTIONS (14)
  - Depressed mood [Unknown]
  - Sleep disorder [Unknown]
  - Paraesthesia [Unknown]
  - Presyncope [Recovering/Resolving]
  - Faeces discoloured [Recovering/Resolving]
  - Elevated mood [Unknown]
  - Polyuria [Unknown]
  - Feeling abnormal [Unknown]
  - Faecal incontinence [Recovering/Resolving]
  - Dehydration [Unknown]
  - Drug withdrawal syndrome [Unknown]
  - Abdominal pain upper [Recovering/Resolving]
  - Diarrhoea [Recovering/Resolving]
  - Hyperhidrosis [Unknown]

NARRATIVE: CASE EVENT DATE: 20100527
